FAERS Safety Report 5816536-2 (Version None)
Quarter: 2008Q3

REPORT INFORMATION
  Report Type: 
  Country: None (occurrence: None)
  Receive Date: 20080717
  Receipt Date: 20080717
  Transmission Date: 20090109
  Serious: No
  Sender: FDA-Public Use
  Company Number: None

PATIENT
  Age: 6 Year
  Sex: Male
  Weight: 19.5047 kg

DRUGS (4)
  1. FOCALIN XR [Suspect]
     Indication: ATTENTION DEFICIT/HYPERACTIVITY DISORDER
     Dosage: 20MG EVERY MORNING PO
     Route: 048
     Dates: start: 20051016, end: 20080716
  2. FOCALIN XR [Suspect]
     Indication: OPPOSITIONAL DEFIANT DISORDER
     Dosage: 20MG EVERY MORNING PO
     Route: 048
     Dates: start: 20051016, end: 20080716
  3. FOCALIN XR [Suspect]
     Indication: ATTENTION DEFICIT/HYPERACTIVITY DISORDER
     Dosage: 15MG EVERY AFTERNOON PO
     Route: 048
     Dates: start: 20051016, end: 20080716
  4. FOCALIN XR [Suspect]
     Indication: OPPOSITIONAL DEFIANT DISORDER
     Dosage: 15MG EVERY AFTERNOON PO
     Route: 048
     Dates: start: 20051016, end: 20080716

REACTIONS (3)
  - ABNORMAL BEHAVIOUR [None]
  - ANXIETY [None]
  - TIC [None]
